FAERS Safety Report 5757339-7 (Version None)
Quarter: 2008Q2

REPORT INFORMATION
  Report Type: 
  Country: None (occurrence: None)
  Receive Date: 20080603
  Receipt Date: 20080528
  Transmission Date: 20081010
  Serious: Yes (Death, Hospitalization, Other)
  Sender: FDA-Public Use
  Company Number: US-BAXTER-2008BH005363

PATIENT
  Age: 72 Year
  Sex: Male
  Weight: 88 kg

DRUGS (6)
  1. HEPARIN SODIUM INJECTION [Suspect]
     Indication: PROPHYLAXIS
     Route: 042
     Dates: start: 20070918, end: 20070918
  2. HEPARIN SODIUM INJECTION [Suspect]
     Route: 042
     Dates: start: 20070919, end: 20070919
  3. HEPARIN SODIUM INJECTION [Suspect]
     Route: 042
     Dates: start: 20070920, end: 20070920
  4. HEPARIN SODIUM INJECTION [Suspect]
     Route: 042
     Dates: start: 20070921, end: 20070921
  5. HEPARIN SODIUM INJECTION [Suspect]
     Route: 042
     Dates: start: 20070924, end: 20070924
  6. HEPARIN SODIUM INJECTION [Suspect]
     Dosage: DOSE UNIT:UNKNOWN
     Route: 042
     Dates: start: 20071015, end: 20071001

REACTIONS (8)
  - ABDOMINAL PAIN UPPER [None]
  - CHEST PAIN [None]
  - CONFUSIONAL STATE [None]
  - DIARRHOEA [None]
  - HEADACHE [None]
  - LABILE BLOOD PRESSURE [None]
  - LOSS OF CONSCIOUSNESS [None]
  - RENAL FAILURE [None]
